FAERS Safety Report 9644510 (Version 2)
Quarter: 2013Q4

REPORT INFORMATION
  Report Type: Report from Study
  Country: US (occurrence: US)
  Receive Date: 20131025
  Receipt Date: 20131106
  Transmission Date: 20140711
  Serious: Yes (Hospitalization)
  Sender: FDA-Public Use
  Company Number: US-BRISTOL-MYERS SQUIBB COMPANY-19602929

PATIENT
  Age: 57 Year
  Sex: Male
  Weight: 68.12 kg

DRUGS (7)
  1. CARBOPLATIN [Suspect]
     Indication: SMALL CELL LUNG CANCER EXTENSIVE STAGE
     Dosage: 1DF:AUC 5 DAY 1?LAST DOSE 24SEP13.INTERRUPTED ON 28SEP13 AND RESTARTED ON 12OCT13
     Dates: start: 20130827
  2. ETOPOSIDE [Suspect]
     Indication: SMALL CELL LUNG CANCER EXTENSIVE STAGE
     Dosage: LAST DOSE:26SEP13 INTERRUPTED ON 28SEP13 AND RESTARTED ON 12OCT13
     Dates: start: 20130827
  3. OLANZAPINE [Concomitant]
     Dates: start: 20130926
  4. ONDANSETRON [Concomitant]
     Dates: start: 20130926
  5. LEVETIRACETAM [Concomitant]
     Dates: start: 20130705
  6. HYDROCODONE BITARTRATE [Concomitant]
     Dates: start: 20130801
  7. PARACETAMOL [Concomitant]

REACTIONS (1)
  - Extrasystoles [Recovered/Resolved]
